FAERS Safety Report 10070494 (Version 1)
Quarter: 2014Q2

REPORT INFORMATION
  Report Type: Spontaneous
  Country: US (occurrence: US)
  Receive Date: 20140410
  Receipt Date: 20140410
  Transmission Date: 20141212
  Serious: No
  Sender: FDA-Public Use
  Company Number: US-BAYER-2014-053390

PATIENT
  Age: 40 Year
  Sex: Male

DRUGS (1)
  1. GADAVIST [Suspect]
     Indication: SOFT TISSUE MASS
     Dosage: 9 ML, ONCE
     Route: 042
     Dates: start: 20140401, end: 20140401

REACTIONS (3)
  - Nausea [Recovered/Resolved]
  - Headache [Recovered/Resolved]
  - Feeling hot [Recovered/Resolved]
